FAERS Safety Report 25118865 (Version 2)
Quarter: 2025Q3

REPORT INFORMATION
  Report Type: Report from Study
  Country: US (occurrence: US)
  Receive Date: 20250325
  Receipt Date: 20250803
  Transmission Date: 20251021
  Serious: Yes (Other)
  Sender: ALEXION PHARMACEUTICALS
  Company Number: US-AstraZeneca-CH-00830326A

PATIENT
  Sex: Male
  Weight: 75 kg

DRUGS (9)
  1. CALQUENCE [Suspect]
     Active Substance: ACALABRUTINIB
     Indication: B-cell small lymphocytic lymphoma
     Dates: start: 20211215
  2. DONEPEZIL [Concomitant]
     Active Substance: DONEPEZIL
     Route: 065
  3. DULOXETINE [Concomitant]
     Active Substance: DULOXETINE
     Route: 065
  4. MEMANTINE [Concomitant]
     Active Substance: MEMANTINE
     Route: 065
  5. VITAMINS [Concomitant]
     Active Substance: VITAMINS
     Route: 065
  6. ROSUVASTATIN [Concomitant]
     Active Substance: ROSUVASTATIN
     Route: 065
  7. VITAMIN B12 [Concomitant]
     Active Substance: CYANOCOBALAMIN
     Route: 065
  8. VITAMIN D3 [Concomitant]
     Active Substance: CHOLECALCIFEROL
     Route: 065
  9. VITAMIN E [Concomitant]
     Active Substance: .ALPHA.-TOCOPHEROL
     Route: 065

REACTIONS (2)
  - Delirium [Recovered/Resolved]
  - Confusional state [Recovered/Resolved]
